FAERS Safety Report 6297753-7 (Version None)
Quarter: 2009Q3

REPORT INFORMATION
  Report Type: 
  Country: None (occurrence: None)
  Receive Date: 20090805
  Receipt Date: 20090729
  Transmission Date: 20100115
  Serious: Yes (Other)
  Sender: FDA-Public Use
  Company Number: BG-ROCHE-647215

PATIENT
  Age: 73 Year
  Sex: Male

DRUGS (5)
  1. MIRCERA [Suspect]
     Route: 058
     Dates: start: 20080201, end: 20090401
  2. MICARDIS [Concomitant]
     Route: 048
  3. FELODIPINE HEXAL [Concomitant]
     Dosage: DRUG NAME REPORTED AS FELOHEXAL.
     Route: 048
  4. FURANTHRIL [Concomitant]
     Route: 048
  5. MILURIT [Concomitant]
     Route: 048

REACTIONS (2)
  - LYMPHOCYTOSIS [None]
  - PLASMACYTOSIS [None]
